FAERS Safety Report 6248394-9 (Version None)
Quarter: 2009Q2

REPORT INFORMATION
  Report Type: 
  Country: None (occurrence: None)
  Receive Date: 20090629
  Receipt Date: 20090623
  Transmission Date: 20091009
  Serious: Yes (Life-Threatening, Other)
  Sender: FDA-Public Use
  Company Number: PHHY2009BR25496

PATIENT
  Age: 60 Year
  Sex: Female

DRUGS (1)
  1. TEGRETOL [Suspect]
     Dosage: UNK
     Dates: start: 19720101

REACTIONS (2)
  - COMA [None]
  - EPILEPSY [None]
